FAERS Safety Report 8345697-9 (Version None)
Quarter: 2012Q2

REPORT INFORMATION
  Report Type: 
  Country: None (occurrence: None)
  Receive Date: 20120508
  Receipt Date: 20120429
  Transmission Date: 20120825
  Serious: Yes (Death, Other)
  Sender: FDA-Public Use
  Company Number: PH-BAXTER-2012BAX004209

PATIENT
  Sex: Female

DRUGS (1)
  1. DIANEAL PD-2 W/ DEXTROSE 1.5% [Suspect]
     Route: 033
     Dates: start: 20120422, end: 20120428

REACTIONS (4)
  - OEDEMA [None]
  - PULMONARY CONGESTION [None]
  - SEPTIC SHOCK [None]
  - PNEUMONIA [None]
